FAERS Safety Report 5244995-5 (Version None)
Quarter: 2007Q1

REPORT INFORMATION
  Report Type: 
  Country: None (occurrence: None)
  Receive Date: 20070223
  Receipt Date: 20070212
  Transmission Date: 20070707
  Serious: Yes (Other)
  Sender: FDA-Public Use
  Company Number: PHBS2006BR19495

PATIENT
  Age: 73 Year
  Sex: Female

DRUGS (6)
  1. TRILEPTAL [Concomitant]
  2. TEGRETOL [Suspect]
     Indication: TRIGEMINAL NEURALGIA
     Dosage: 2 TABLETS, BID
     Route: 048
  3. ACETYLSALICYLIC ACID SRT [Concomitant]
     Dosage: 1 TABLET AFTER LUNCH
     Route: 048
  4. RIVOTRIL [Concomitant]
     Indication: DEPRESSION
     Dosage: 1 TABLET/DAY
     Route: 048
  5. PROPRANOLOL [Concomitant]
     Indication: HYPERTENSION
     Dosage: 1 TABLET/DAY
     Route: 048
  6. CLORANA [Concomitant]
     Indication: HYPERTENSION
     Dosage: 1 TABLET/DAY
     Route: 048

REACTIONS (3)
  - DRUG INEFFECTIVE [None]
  - ORAL INTAKE REDUCED [None]
  - SWELLING FACE [None]
